FAERS Safety Report 15255193 (Version 1)
Quarter: 2018Q3

REPORT INFORMATION
  Report Type: Spontaneous
  Country: BE (occurrence: BE)
  Receive Date: 20180808
  Receipt Date: 20180808
  Transmission Date: 20181010
  Serious: Yes (Hospitalization, Other)
  Sender: FDA-Public Use
  Company Number: BE-PFIZER INC-2018312299

PATIENT
  Age: 26 Year
  Sex: Female
  Weight: 74 kg

DRUGS (5)
  1. IMMUNOGLOBULIN I.V [Suspect]
     Active Substance: HUMAN IMMUNOGLOBULIN G
     Indication: NEUROMYELITIS OPTICA SPECTRUM DISORDER
     Route: 065
  2. MABTHERA [Suspect]
     Active Substance: RITUXIMAB
     Indication: NEUROMYELITIS OPTICA SPECTRUM DISORDER
     Route: 042
     Dates: start: 20170921, end: 20171006
  3. SOLU?MEDROL [Suspect]
     Active Substance: METHYLPREDNISOLONE SODIUM SUCCINATE
     Indication: NEUROMYELITIS OPTICA SPECTRUM DISORDER
     Dosage: 1 G, 1X/DAY
     Route: 065
  4. ROCEPHIN [Suspect]
     Active Substance: CEFTRIAXONE SODIUM
     Indication: PNEUMONIA PNEUMOCOCCAL
     Route: 065
  5. MABTHERA [Suspect]
     Active Substance: RITUXIMAB
     Dosage: UNK
     Route: 042
     Dates: start: 20180405, end: 20180419

REACTIONS (21)
  - Off label use [Unknown]
  - Device related infection [Unknown]
  - Cough [Unknown]
  - Pneumonia pneumococcal [Unknown]
  - Intentional product use issue [Unknown]
  - Onychomycosis [Unknown]
  - Miliaria [Unknown]
  - Bronchitis viral [Unknown]
  - Depression [Unknown]
  - Bacterial diarrhoea [Unknown]
  - Herpes simplex pharyngitis [Unknown]
  - Oral herpes [Unknown]
  - Alopecia [Unknown]
  - Hypogammaglobulinaemia [Unknown]
  - Pneumonia [Unknown]
  - Hepatic steatosis [Unknown]
  - Petechiae [Unknown]
  - Incorrect drug administration rate [Unknown]
  - Arteriovenous fistula [Unknown]
  - Neuromyelitis optica spectrum disorder [Unknown]
  - Blindness [Not Recovered/Not Resolved]

NARRATIVE: CASE EVENT DATE: 20171006
